FAERS Safety Report 17211323 (Version 1)
Quarter: 2019Q4

REPORT INFORMATION
  Report Type: Spontaneous
  Country: US (occurrence: US)
  Receive Date: 20191228
  Receipt Date: 20191228
  Transmission Date: 20200122
  Serious: Yes (Other)
  Sender: FDA-Public Use
  Company Number: US-TEVA-2019-US-1160161

PATIENT
  Sex: Female

DRUGS (1)
  1. METOCLOPRAMIDE TEVA [Suspect]
     Active Substance: METOCLOPRAMIDE
     Route: 065

REACTIONS (5)
  - Parkinson^s disease [Unknown]
  - Memory impairment [Unknown]
  - Fall [Unknown]
  - Tremor [Unknown]
  - Depression [Unknown]
